FAERS Safety Report 14588490 (Version 3)
Quarter: 2018Q1

REPORT INFORMATION
  Report Type: Report from Study
  Country: HU (occurrence: HU)
  Receive Date: 20180301
  Receipt Date: 20180315
  Transmission Date: 20180509
  Serious: Yes (Hospitalization, Other)
  Sender: FDA-Public Use
  Company Number: HU-GLAXOSMITHKLINE-HU2018GSK033776

PATIENT
  Sex: Female
  Weight: 95 kg

DRUGS (5)
  1. CATAFLAM [Suspect]
     Active Substance: DICLOFENAC POTASSIUM
     Indication: INTERCOSTAL NEURALGIA
     Dosage: 150 UNK, UNK
     Route: 048
     Dates: start: 20180220, end: 20180221
  2. BLINDED DARBEPOETIN ALFA [Suspect]
     Active Substance: DARBEPOETIN ALFA
     Indication: NEPHROGENIC ANAEMIA
     Dosage: UNK
     Dates: start: 20180110
  3. BLINDED DARBEPOETIN ALFA [Suspect]
     Active Substance: DARBEPOETIN ALFA
     Indication: NEPHROGENIC ANAEMIA
     Dosage: UNK
     Dates: start: 20180110
  4. BLINDED DAPRODUSTAT [Suspect]
     Active Substance: DAPRODUSTAT
     Indication: NEPHROGENIC ANAEMIA
     Dosage: UNK
     Dates: start: 20180110
  5. BLINDED EPOETIN ALFA [Suspect]
     Active Substance: ERYTHROPOIETIN
     Indication: NEPHROGENIC ANAEMIA
     Dosage: UNK
     Dates: start: 20180110

REACTIONS (1)
  - Gastrointestinal erosion [Recovered/Resolved]

NARRATIVE: CASE EVENT DATE: 20180221
